FAERS Safety Report 15801008 (Version 2)
Quarter: 2019Q1

REPORT INFORMATION
  Report Type: Report from Study
  Country: None (occurrence: NL)
  Receive Date: 20190109
  Receipt Date: 20190130
  Transmission Date: 20190417
  Serious: Yes (Hospitalization)
  Sender: FDA-Public Use
  Company Number: NL-ABBVIE-18S-114-2551838-00

PATIENT
  Sex: Male

DRUGS (3)
  1. DUODOPA [Suspect]
     Active Substance: CARBIDOPA\LEVODOPA
     Indication: PARKINSON^S DISEASE
     Route: 050
     Dates: start: 20151008
  2. DUODOPA [Suspect]
     Active Substance: CARBIDOPA\LEVODOPA
     Dosage: MD: 5.4
     Route: 050
  3. DUODOPA [Suspect]
     Active Substance: CARBIDOPA\LEVODOPA
     Dosage: MD INCREASED EXTRA BY 3.0 ML.
     Route: 050

REACTIONS (8)
  - Abnormal behaviour [Not Recovered/Not Resolved]
  - Medical device site injury [Unknown]
  - Stoma site odour [Not Recovered/Not Resolved]
  - Stoma site reaction [Not Recovered/Not Resolved]
  - Device breakage [Recovered/Resolved]
  - Restlessness [Not Recovered/Not Resolved]
  - Intentional device misuse [Unknown]
  - Stoma site discharge [Not Recovered/Not Resolved]
